FAERS Safety Report 7562789-2 (Version None)
Quarter: 2011Q2

REPORT INFORMATION
  Report Type: 
  Country: None (occurrence: None)
  Receive Date: 20110621
  Receipt Date: 20110621
  Transmission Date: 20111010
  Serious: No
  Sender: FDA-Public Use
  Company Number: None

PATIENT
  Sex: Female

DRUGS (1)
  1. COPAXONE [Suspect]
     Indication: MULTIPLE SCLEROSIS
     Dosage: 20 MG DAILY SQ
     Route: 058

REACTIONS (5)
  - LOSS OF CONSCIOUSNESS [None]
  - DRUG DOSE OMISSION [None]
  - ANXIETY [None]
  - DYSPNOEA [None]
  - VOMITING [None]
